FAERS Safety Report 9807576 (Version 1)
Quarter: 2014Q1

REPORT INFORMATION
  Report Type: Spontaneous
  Country: US (occurrence: US)
  Receive Date: 20140110
  Receipt Date: 20140110
  Transmission Date: 20141002
  Serious: No
  Sender: FDA-Public Use
  Company Number: US-SANOFI-AVENTIS-2013SA041295

PATIENT
  Sex: Female
  Weight: 53 kg

DRUGS (3)
  1. PLAVIX [Suspect]
     Indication: CEREBROVASCULAR ACCIDENT
     Dosage: TAKEN FROM-TWO YEARS AGO
     Route: 065
  2. TEGRETOL [Concomitant]
     Route: 065
  3. PEPCID [Concomitant]

REACTIONS (1)
  - Gastrooesophageal reflux disease [Not Recovered/Not Resolved]
